FAERS Safety Report 24106141 (Version 1)
Quarter: 2024Q3

REPORT INFORMATION
  Report Type: Spontaneous
  Country: US (occurrence: US)
  Receive Date: 20240717
  Receipt Date: 20240717
  Transmission Date: 20241017
  Serious: Yes (Other)
  Sender: AMGEN
  Company Number: US-AMGEN-USASP2024137375

PATIENT
  Age: 9 Year
  Sex: Male

DRUGS (11)
  1. EPOETIN ALFA [Suspect]
     Active Substance: ERYTHROPOIETIN
     Indication: Haemolysis
     Dosage: 10000 UNIT, QD, DOA 2-7
     Route: 065
  2. EPOETIN ALFA [Suspect]
     Active Substance: ERYTHROPOIETIN
     Indication: Off label use
  3. HYDROXYUREA [Concomitant]
     Active Substance: HYDROXYUREA
     Indication: Sickle cell disease
     Dosage: UNK
     Route: 065
  4. VOXELOTOR [Concomitant]
     Active Substance: VOXELOTOR
     Indication: Sickle cell disease
     Dosage: UNK
     Route: 065
  5. METHYLPREDNISOLONE [Concomitant]
     Active Substance: METHYLPREDNISOLONE
     Indication: Haemolysis
     Dosage: 30 MILLIGRAM/KILOGRAM, QD, DOA 1-3
     Route: 065
  6. METHYLPREDNISOLONE [Concomitant]
     Active Substance: METHYLPREDNISOLONE
     Dosage: 2 MILLIGRAM/KILOGRAM, QD,  DOA 4-7
     Route: 065
  7. METHYLPREDNISOLONE [Concomitant]
     Active Substance: METHYLPREDNISOLONE
     Dosage: 1 MILLIGRAM/KILOGRAM, QD,  DOA 8-9
     Route: 065
  8. ECULIZUMAB [Concomitant]
     Active Substance: ECULIZUMAB
     Indication: Haemolysis
     Dosage: 600 MILLIGRAM, (20 MG/KG), DOA 5
  9. FOLIC ACID [Concomitant]
     Active Substance: FOLIC ACID
     Dosage: 1 MILLIGRAM, QD, DOA 5-9
  10. METHYLCOBALAMIN [Concomitant]
     Active Substance: METHYLCOBALAMIN
     Dosage: 1 MILLIGRAM, EVERY OTHER DAY
     Route: 030
  11. PENICILLIN [Concomitant]
     Active Substance: PENICILLIN
     Route: 065

REACTIONS (2)
  - Anaemia [Recovering/Resolving]
  - Off label use [Unknown]
